FAERS Safety Report 20389563 (Version 1)
Quarter: 2022Q1

REPORT INFORMATION
  Report Type: Spontaneous
  Country: US (occurrence: US)
  Receive Date: 20220128
  Receipt Date: 20220128
  Transmission Date: 20220423
  Serious: No
  Sender: FDA-Public Use
  Company Number: US-GLAXOSMITHKLINE-USCH2022003456

PATIENT
  Sex: Female

DRUGS (4)
  1. ADVIL [Interacting]
     Active Substance: IBUPROFEN
     Indication: Pyrexia
     Dosage: UNK
  2. ADVIL [Interacting]
     Active Substance: IBUPROFEN
     Indication: Pain
  3. TYLENOL [Suspect]
     Active Substance: ACETAMINOPHEN
     Indication: Pyrexia
     Dosage: UNK
  4. TYLENOL [Suspect]
     Active Substance: ACETAMINOPHEN
     Indication: Pain

REACTIONS (1)
  - Off label use [Unknown]
